FAERS Safety Report 10852570 (Version 1)
Quarter: 2015Q1

REPORT INFORMATION
  Report Type: Spontaneous
  Country: US (occurrence: US)
  Receive Date: 20150222
  Receipt Date: 20150222
  Transmission Date: 20150721
  Serious: No
  Sender: FDA-Public Use
  Company Number: US-ALLERGAN-1419590US

PATIENT
  Age: 59 Year
  Sex: Male

DRUGS (2)
  1. BOTOX [Suspect]
     Active Substance: ONABOTULINUMTOXINA
     Indication: LARYNGOSPASM
     Dosage: UNK UNK, SINGLE
     Route: 030
     Dates: start: 20131205, end: 20131205
  2. BOTOX [Suspect]
     Active Substance: ONABOTULINUMTOXINA
     Indication: SPASMODIC DYSPHONIA
     Dosage: UNK UNK, SINGLE
     Route: 030
     Dates: start: 20140121, end: 20140121

REACTIONS (4)
  - Off label use [Unknown]
  - Dysphonia [Recovered/Resolved]
  - Overdose [Unknown]
  - Dysphagia [Unknown]

NARRATIVE: CASE EVENT DATE: 20140123
